FAERS Safety Report 25493644 (Version 1)
Quarter: 2025Q2

REPORT INFORMATION
  Report Type: Report from Study
  Country: IT (occurrence: IT)
  Receive Date: 20250630
  Receipt Date: 20250630
  Transmission Date: 20250717
  Serious: Yes (Death, Other)
  Sender: RANBAXY
  Company Number: IT-SUN PHARMACEUTICAL INDUSTRIES LTD-2025R1-513940

PATIENT

DRUGS (4)
  1. DIGOXIN [Suspect]
     Active Substance: DIGOXIN
     Indication: Nodal arrhythmia
     Route: 065
  2. DIGOXIN [Suspect]
     Active Substance: DIGOXIN
     Indication: Supraventricular tachycardia
  3. SOTALOL [Suspect]
     Active Substance: SOTALOL
     Indication: Nodal arrhythmia
     Route: 065
  4. SOTALOL [Suspect]
     Active Substance: SOTALOL
     Indication: Supraventricular tachycardia

REACTIONS (1)
  - Hydrops foetalis [Fatal]
